FAERS Safety Report 7378026-8 (Version None)
Quarter: 2011Q1

REPORT INFORMATION
  Report Type: 
  Country: None (occurrence: None)
  Receive Date: 20110317
  Receipt Date: 20110228
  Transmission Date: 20110831
  Serious: Yes (Hospitalization, Other)
  Sender: FDA-Public Use
  Company Number: JPI-P-013891

PATIENT
  Age: 51 Year
  Sex: Male
  Weight: 88.4514 kg

DRUGS (17)
  1. PRIMIDONE [Concomitant]
  2. XYREM [Suspect]
     Indication: CATAPLEXY
     Dosage: SEE IMAGE
     Route: 048
     Dates: start: 20110201, end: 20110224
  3. XYREM [Suspect]
     Indication: FIBROMYALGIA
     Dosage: SEE IMAGE
     Route: 048
     Dates: start: 20110201, end: 20110224
  4. XYREM [Suspect]
     Indication: CATAPLEXY
     Dosage: SEE IMAGE
     Route: 048
     Dates: start: 20110227
  5. XYREM [Suspect]
     Indication: FIBROMYALGIA
     Dosage: SEE IMAGE
     Route: 048
     Dates: start: 20110227
  6. XYREM [Suspect]
     Indication: CATAPLEXY
     Dosage: SEE IMAGE
     Route: 048
     Dates: start: 20110204, end: 20110209
  7. XYREM [Suspect]
     Indication: FIBROMYALGIA
     Dosage: SEE IMAGE
     Route: 048
     Dates: start: 20110204, end: 20110209
  8. XYREM [Suspect]
     Indication: CATAPLEXY
     Dosage: SEE IMAGE
     Route: 048
     Dates: start: 20110210, end: 20110210
  9. XYREM [Suspect]
     Indication: FIBROMYALGIA
     Dosage: SEE IMAGE
     Route: 048
     Dates: start: 20110210, end: 20110210
  10. VENLFAXINE HYDROCHLORIDE [Concomitant]
  11. PRAMIPEXOLE DIHYDROCHLORIDE [Concomitant]
  12. CARISOPRODOL [Concomitant]
  13. CLONAZEPAM [Concomitant]
  14. MILNACIPRAN [Suspect]
     Indication: FIBROMYALGIA
     Dosage: 100 MG (50 MG,2 IN 1 D)
     Dates: start: 20101101, end: 20110221
  15. VERAPAMIL [Concomitant]
  16. OXYCODONE [Concomitant]
  17. TRAMADOL [Concomitant]

REACTIONS (18)
  - STEATORRHOEA [None]
  - NERVOUS SYSTEM DISORDER [None]
  - ESSENTIAL TREMOR [None]
  - CONDITION AGGRAVATED [None]
  - EXOPHTHALMOS [None]
  - LOSS OF CONSCIOUSNESS [None]
  - OCULAR ICTERUS [None]
  - FACIAL SPASM [None]
  - TIC [None]
  - SOMNAMBULISM [None]
  - DIARRHOEA [None]
  - DYSGEUSIA [None]
  - PRODUCT ODOUR ABNORMAL [None]
  - BLOOD GLUCOSE DECREASED [None]
  - EYE MOVEMENT DISORDER [None]
  - BRUXISM [None]
  - INCOHERENT [None]
  - TRISMUS [None]
